FAERS Safety Report 12213328 (Version 2)
Quarter: 2016Q1

REPORT INFORMATION
  Report Type: Spontaneous
  Country: JP (occurrence: JP)
  Receive Date: 20160328
  Receipt Date: 20160329
  Transmission Date: 20160526
  Serious: Yes (Other)
  Sender: FDA-Public Use
  Company Number: JP-JNJFOC-20160316176

PATIENT
  Sex: Female

DRUGS (1)
  1. LISTERINE NATURALS ANTISEPTIC - HERBAL MINT [Suspect]
     Active Substance: EUCALYPTOL\MENTHOL\METHYL SALICYLATE\THYMOL
     Indication: PRODUCT USED FOR UNKNOWN INDICATION
     Dosage: DRINK ONE-QUATER OF THE PRODUCT(1000ML)
     Route: 048

REACTIONS (3)
  - Oropharyngeal pain [Unknown]
  - Intentional product use issue [Unknown]
  - Suicide attempt [Unknown]

NARRATIVE: CASE EVENT DATE: 20160316
